FAERS Safety Report 19936153 (Version 6)
Quarter: 2022Q1

REPORT INFORMATION
  Report Type: Spontaneous
  Country: US (occurrence: US)
  Receive Date: 20211008
  Receipt Date: 20220104
  Transmission Date: 20220423
  Serious: Yes (Hospitalization)
  Sender: FDA-Public Use
  Company Number: US-PFIZER INC-202100951514

PATIENT
  Age: 64 Year
  Sex: Female
  Weight: 109.29 kg

DRUGS (31)
  1. IBRANCE [Suspect]
     Active Substance: PALBOCICLIB
     Indication: Breast cancer metastatic
     Dosage: DAILY FOR 21 DAYS
     Dates: start: 20210519
  2. IBRANCE [Suspect]
     Active Substance: PALBOCICLIB
     Dosage: DAILY FOR 21 DAYS
     Route: 048
  3. IBRANCE [Suspect]
     Active Substance: PALBOCICLIB
     Dosage: EVERY OTHER DAY
  4. IBRANCE [Suspect]
     Active Substance: PALBOCICLIB
     Dosage: DAILY FOR 21 DAYS THEN OFF 7 DAYS
     Route: 048
  5. IBRANCE [Suspect]
     Active Substance: PALBOCICLIB
     Dosage: DAILY FOR 21 DAYS THEN OFF 7 DAYS
     Route: 048
     Dates: start: 20210519
  6. LEVOTHYROXINE [Concomitant]
     Active Substance: LEVOTHYROXINE
     Dosage: UNK
  7. AMLODIPINE [Concomitant]
     Active Substance: AMLODIPINE BESYLATE
     Dosage: UNK
  8. ALBUTEROL [Concomitant]
     Active Substance: ALBUTEROL
     Dosage: UNK
  9. CALCIUM [Concomitant]
     Active Substance: CALCIUM
     Dosage: UNK
  10. FISH OIL [Concomitant]
     Active Substance: FISH OIL
     Dosage: UNK
  11. IRON [Concomitant]
     Active Substance: IRON
     Dosage: UNK
  12. VITAMIN D3 [Concomitant]
     Active Substance: CHOLECALCIFEROL
     Dosage: UNK
  13. LOSARTAN [Concomitant]
     Active Substance: LOSARTAN
     Dosage: UNK (CUT LOSARTAN IN HALF)
  14. ALBUTEROL SULFATE [Concomitant]
     Active Substance: ALBUTEROL SULFATE
     Dosage: UNK
  15. CALCIUM CARBONATE [Concomitant]
     Active Substance: CALCIUM CARBONATE
     Dosage: UNK
  16. FISH OIL [Concomitant]
     Active Substance: FISH OIL
     Dosage: UNK
  17. AMITRIPTYLINE [Concomitant]
     Active Substance: AMITRIPTYLINE
  18. ARIPIPRAZOLE [Concomitant]
     Active Substance: ARIPIPRAZOLE
  19. RAN BUPROPION XL [Concomitant]
  20. ESCITALOPRAM [Concomitant]
     Active Substance: ESCITALOPRAM OXALATE
  21. FERROUS SULFATE [Concomitant]
     Active Substance: FERROUS SULFATE
  22. FLUCELVAX QUADRIVALENT [Concomitant]
  23. LABETALOL [Concomitant]
     Active Substance: LABETALOL\LABETALOL HYDROCHLORIDE
  24. LETROZOLE [Concomitant]
     Active Substance: LETROZOLE
  25. METFORMIN [Concomitant]
     Active Substance: METFORMIN HYDROCHLORIDE
  26. MODERNA COVID-19 VACCINE [Concomitant]
     Active Substance: ELASOMERAN
  27. OXYCODONE [Concomitant]
     Active Substance: OXYCODONE
  28. QUETIAPINE [Concomitant]
     Active Substance: QUETIAPINE
  29. SIMVASTATIN [Concomitant]
     Active Substance: SIMVASTATIN
  30. TRAZODONE [Concomitant]
     Active Substance: TRAZODONE HYDROCHLORIDE
  31. VENLAFAXINE [Concomitant]
     Active Substance: VENLAFAXINE HYDROCHLORIDE

REACTIONS (11)
  - COVID-19 [Unknown]
  - White blood cell count decreased [Not Recovered/Not Resolved]
  - Back pain [Unknown]
  - Inflammation [Unknown]
  - Dry eye [Unknown]
  - Hypotension [Unknown]
  - Taste disorder [Unknown]
  - Bone pain [Unknown]
  - Full blood count abnormal [Recovering/Resolving]
  - Off label use [Unknown]
  - Neoplasm progression [Not Recovered/Not Resolved]

NARRATIVE: CASE EVENT DATE: 20210101
